FAERS Safety Report 12475449 (Version 3)
Quarter: 2016Q3

REPORT INFORMATION
  Report Type: Spontaneous
  Country: JP (occurrence: JP)
  Receive Date: 20160617
  Receipt Date: 20160912
  Transmission Date: 20161109
  Serious: Yes (Death, Hospitalization, Other)
  Sender: FDA-Public Use
  Company Number: PHJP2016JP015151

PATIENT
  Age: 68 Year
  Sex: Female
  Weight: 53.35 kg

DRUGS (16)
  1. PREDNISOLONE. [Concomitant]
     Active Substance: PREDNISOLONE
     Indication: POLYMYOSITIS
     Dosage: 25 MG, BID
     Route: 048
     Dates: start: 20160531, end: 20160602
  2. VENOGLOBULIN IH [Concomitant]
     Active Substance: HUMAN IMMUNOGLOBULIN G
     Indication: POLYMYOSITIS
     Dosage: 20 G, QD
     Route: 042
     Dates: start: 20160603, end: 20160607
  3. NEORAL [Suspect]
     Active Substance: CYCLOSPORINE
     Indication: INTERSTITIAL LUNG DISEASE
     Dosage: 75 MG, BID (150 MG DAILY)
     Route: 048
     Dates: start: 20160523, end: 20160601
  4. SOLU-MEDROL [Concomitant]
     Active Substance: METHYLPREDNISOLONE SODIUM SUCCINATE
     Dosage: 1000 MG, QD
     Route: 042
     Dates: start: 20160528, end: 20160530
  5. PREDNISOLONE. [Concomitant]
     Active Substance: PREDNISOLONE
     Indication: INTERSTITIAL LUNG DISEASE
     Dosage: 25 MG, BID
     Route: 048
     Dates: start: 20160523, end: 20160527
  6. VENOGLOBULIN IH [Concomitant]
     Active Substance: HUMAN IMMUNOGLOBULIN G
     Indication: INTERSTITIAL LUNG DISEASE
  7. CRESTOR [Concomitant]
     Active Substance: ROSUVASTATIN CALCIUM
     Indication: HYPERCHOLESTEROLAEMIA
     Dosage: 2.5 MG, QD
     Route: 048
     Dates: end: 20160520
  8. TAKEPRON [Concomitant]
     Active Substance: LANSOPRAZOLE
     Indication: PRODUCT USED FOR UNKNOWN INDICATION
     Dosage: 30 MG, QD
     Route: 042
     Dates: start: 20160520, end: 20160522
  9. BAKTAR [Concomitant]
     Active Substance: SULFAMETHOXAZOLE\TRIMETHOPRIM
     Indication: PRODUCT USED FOR UNKNOWN INDICATION
     Dosage: 1 DF, QD
     Route: 048
     Dates: start: 20160520, end: 20160524
  10. ENDOXAN [Concomitant]
     Active Substance: CYCLOPHOSPHAMIDE
     Indication: INTERSTITIAL LUNG DISEASE
     Dosage: 500 MG, QD
     Route: 042
     Dates: start: 20160531, end: 20160531
  11. ENDOXAN [Concomitant]
     Active Substance: CYCLOPHOSPHAMIDE
     Indication: POLYMYOSITIS
  12. SANDIMMUN INFUSION [Suspect]
     Active Substance: CYCLOSPORINE
     Indication: POLYMYOSITIS
     Dosage: 100 MG, QD
     Route: 042
     Dates: start: 20160607, end: 20160609
  13. NEORAL [Suspect]
     Active Substance: CYCLOSPORINE
     Indication: POLYMYOSITIS
     Dosage: 190 MG, QD
     Route: 048
     Dates: start: 20160602, end: 20160603
  14. SANDIMMUN INFUSION [Suspect]
     Active Substance: CYCLOSPORINE
     Indication: INTERSTITIAL LUNG DISEASE
     Dosage: 190 MG, QD
     Route: 042
     Dates: start: 20160604, end: 20160606
  15. LANSOPRAZOLE. [Concomitant]
     Active Substance: LANSOPRAZOLE
     Indication: PRODUCT USED FOR UNKNOWN INDICATION
     Dosage: 30 MG, QD
     Route: 048
     Dates: start: 20160523, end: 20160524
  16. SOLU-MEDROL [Concomitant]
     Active Substance: METHYLPREDNISOLONE SODIUM SUCCINATE
     Indication: POLYMYOSITIS
     Dosage: 1000 MG, QD
     Route: 042
     Dates: start: 20160520, end: 20160522

REACTIONS (9)
  - Product use issue [Fatal]
  - Respiratory disorder [Fatal]
  - Oral administration complication [Fatal]
  - Dyspnoea [Fatal]
  - Loss of consciousness [Recovered/Resolved]
  - Blood lactate dehydrogenase increased [Unknown]
  - Monocyte count decreased [Unknown]
  - Lymphocyte count decreased [Unknown]
  - Drug ineffective for unapproved indication [Unknown]

NARRATIVE: CASE EVENT DATE: 20160523
